FAERS Safety Report 5701832-X (Version None)
Quarter: 2008Q2

REPORT INFORMATION
  Report Type: 
  Country: None (occurrence: None)
  Receive Date: 20080411
  Receipt Date: 20080411
  Transmission Date: 20081010
  Serious: Yes (Death)
  Sender: FDA-Public Use
  Company Number: None

PATIENT
  Sex: Male
  Weight: 72.5755 kg

DRUGS (1)
  1. HEPARIN [Suspect]
     Dates: start: 20071230, end: 20080114

REACTIONS (7)
  - ABDOMINAL DISTENSION [None]
  - BLOOD PRESSURE DECREASED [None]
  - DRUG HYPERSENSITIVITY [None]
  - LUNG DISORDER [None]
  - MYOCARDIAL INFARCTION [None]
  - RASH [None]
  - RENAL DISORDER [None]
